FAERS Safety Report 9170909 (Version 1)
Quarter: 2013Q1

REPORT INFORMATION
  Report Type: Spontaneous
  Country: FR (occurrence: None)
  Receive Date: 20130312
  Receipt Date: 20130312
  Transmission Date: 20140127
  Serious: Yes (Other)
  Sender: FDA-Public Use
  Company Number: AXC-2013-000083

PATIENT
  Age: 56 Year
  Sex: Female

DRUGS (2)
  1. PYLERA [Suspect]
     Indication: HELICOBACTER INFECTION
     Route: 048
     Dates: start: 20130115
  2. MOPRAL [Suspect]
     Indication: HELICOBACTER INFECTION
     Route: 048
     Dates: start: 20130115

REACTIONS (3)
  - Purpura non-thrombocytopenic [None]
  - Rash macular [None]
  - Rash pruritic [None]
